FAERS Safety Report 5085511-0 (Version None)
Quarter: 2006Q3

REPORT INFORMATION
  Report Type: 
  Country: None (occurrence: None)
  Receive Date: 20060731
  Receipt Date: 20060213
  Transmission Date: 20061208
  Serious: Yes (Life-Threatening, Hospitalization)
  Sender: FDA-Public Use
  Company Number: 200610140BWH

PATIENT
  Age: 68 Year
  Sex: Male

DRUGS (1)
  1. AVELOX [Suspect]
     Indication: RHINITIS
     Dosage: 400 MG ONCE ORAL
     Route: 048
     Dates: start: 20051221

REACTIONS (4)
  - ANAPHYLACTIC REACTION [None]
  - CARDIAC ARREST [None]
  - CONVULSION [None]
  - RASH [None]
